APPROVED DRUG PRODUCT: GRANISETRON HYDROCHLORIDE
Active Ingredient: GRANISETRON HYDROCHLORIDE
Strength: EQ 4MG BASE/4ML (EQ 1MG BASE/ML)
Dosage Form/Route: INJECTABLE;INJECTION
Application: A204238 | Product #002
Applicant: EUGIA PHARMA SPECIALITIES LTD
Approved: Jul 6, 2016 | RLD: No | RS: No | Type: DISCN